FAERS Safety Report 13722178 (Version 2)
Quarter: 2017Q3

REPORT INFORMATION
  Report Type: Spontaneous
  Country: US (occurrence: US)
  Receive Date: 20170706
  Receipt Date: 20170725
  Transmission Date: 20171127
  Serious: Yes (Other)
  Sender: FDA-Public Use
  Company Number: US-AMGEN-USASL2017099472

PATIENT
  Age: 0 Day
  Sex: Male

DRUGS (1)
  1. ENBREL [Suspect]
     Active Substance: ETANERCEPT
     Indication: EXPOSURE DURING PREGNANCY
     Dosage: 50 MG, 2 TIMES/WK
     Route: 065

REACTIONS (1)
  - Fallot^s tetralogy [Recovering/Resolving]

NARRATIVE: CASE EVENT DATE: 20151028
